FAERS Safety Report 25181486 (Version 1)
Quarter: 2025Q2

REPORT INFORMATION
  Report Type: Report from Study
  Country: US (occurrence: US)
  Receive Date: 20250410
  Receipt Date: 20250410
  Transmission Date: 20250716
  Serious: Yes (Hospitalization, Other)
  Sender: SANOFI AVENTIS
  Company Number: US-SA-2025SA101327

PATIENT
  Age: 71 Year
  Sex: Male
  Weight: 88.3 kg

DRUGS (48)
  1. DOCETAXEL [Suspect]
     Active Substance: DOCETAXEL
     Indication: Prostate cancer metastatic
     Dosage: 10 MG/M2, Q3W
     Route: 042
     Dates: start: 20230825, end: 20230825
  2. DOCETAXEL [Suspect]
     Active Substance: DOCETAXEL
     Dosage: 114 MG, Q3W
     Route: 042
     Dates: start: 20230915, end: 20230915
  3. DOCETAXEL [Suspect]
     Active Substance: DOCETAXEL
     Dosage: 114 MG, Q3W
     Route: 042
     Dates: start: 20231006, end: 20231006
  4. DOCETAXEL [Suspect]
     Active Substance: DOCETAXEL
     Dosage: 350 MG, Q3W
     Route: 042
     Dates: start: 20231027, end: 20231027
  5. DOCETAXEL [Suspect]
     Active Substance: DOCETAXEL
     Dosage: 114 MG, Q3W
     Route: 042
     Dates: start: 20231117, end: 20231117
  6. DOCETAXEL [Suspect]
     Active Substance: DOCETAXEL
     Dosage: 114 MG, Q3W
     Route: 042
     Dates: start: 20240216, end: 20240216
  7. DOCETAXEL [Suspect]
     Active Substance: DOCETAXEL
     Dosage: 114 MG, Q3W
     Route: 042
     Dates: start: 20240308, end: 20240308
  8. DOCETAXEL [Suspect]
     Active Substance: DOCETAXEL
     Dosage: 114 MG, Q3W
     Route: 042
     Dates: start: 20240329, end: 20240329
  9. DOCETAXEL [Suspect]
     Active Substance: DOCETAXEL
     Dosage: 60 MG, Q3W
     Route: 042
     Dates: start: 20240419, end: 20240419
  10. DOCETAXEL [Suspect]
     Active Substance: DOCETAXEL
     Dosage: 114 MG, Q3W
     Route: 042
     Dates: start: 20240510, end: 20240510
  11. DOCETAXEL [Suspect]
     Active Substance: DOCETAXEL
     Dosage: 76 MG, Q3W
     Route: 042
     Dates: start: 20240531, end: 20240531
  12. DOCETAXEL [Suspect]
     Active Substance: DOCETAXEL
     Dosage: 76 MG, Q3W
     Route: 042
     Dates: start: 20240621, end: 20240621
  13. CARBOPLATIN [Suspect]
     Active Substance: CARBOPLATIN
     Indication: Prostate cancer stage 0
     Dosage: 255.3 MG, Q3W
     Route: 042
     Dates: start: 20230825, end: 20230825
  14. CARBOPLATIN [Suspect]
     Active Substance: CARBOPLATIN
     Dosage: 253.8 MG, Q3W
     Route: 042
     Dates: start: 20230915, end: 20230915
  15. CARBOPLATIN [Suspect]
     Active Substance: CARBOPLATIN
     Dosage: 372.4 MG, Q3W
     Route: 042
     Dates: start: 20231006, end: 20231006
  16. CARBOPLATIN [Suspect]
     Active Substance: CARBOPLATIN
     Dosage: 350 MG, Q3W
     Route: 042
     Dates: start: 20231027, end: 20231027
  17. CARBOPLATIN [Suspect]
     Active Substance: CARBOPLATIN
     Dosage: 367.6 MG, Q3W
     Route: 042
     Dates: start: 20231117, end: 20231117
  18. CARBOPLATIN [Suspect]
     Active Substance: CARBOPLATIN
     Dosage: 258.9 MG, Q3W
     Route: 042
     Dates: start: 20240216, end: 20240216
  19. CARBOPLATIN [Suspect]
     Active Substance: CARBOPLATIN
     Dosage: 210.9 MG, Q3W
     Route: 042
     Dates: start: 20240308, end: 20240308
  20. CARBOPLATIN [Suspect]
     Active Substance: CARBOPLATIN
     Dosage: 274.2 MG, Q3W
     Route: 042
     Dates: start: 20240329, end: 20240329
  21. PROLIA [Concomitant]
     Active Substance: DENOSUMAB
     Dates: start: 20230524
  22. LUPRON [Concomitant]
     Active Substance: LEUPROLIDE ACETATE
     Dates: start: 20220617
  23. PLAVIX [Concomitant]
     Active Substance: CLOPIDOGREL BISULFATE
     Dates: start: 20190322
  24. NITROSTAT [Concomitant]
     Active Substance: NITROGLYCERIN
     Dates: start: 20220324
  25. TOPROL XL [Concomitant]
     Active Substance: METOPROLOL SUCCINATE
     Dates: start: 20190322
  26. METOPROLOL SUCCINATE [Concomitant]
     Active Substance: METOPROLOL SUCCINATE
     Dates: start: 20190322
  27. LIPITOR [Concomitant]
     Active Substance: ATORVASTATIN CALCIUM
     Dates: start: 20190322
  28. ATORVASTATIN [Concomitant]
     Active Substance: ATORVASTATIN
     Dates: start: 20190322
  29. LOVAZA [Concomitant]
     Active Substance: OMEGA-3-ACID ETHYL ESTERS
     Dates: start: 20220105
  30. EFFEXOR [Concomitant]
     Active Substance: VENLAFAXINE HYDROCHLORIDE
     Dates: start: 20230601
  31. GABAPENTIN [Concomitant]
     Active Substance: GABAPENTIN
     Dates: start: 20190329
  32. LORATADINE [Concomitant]
     Active Substance: LORATADINE
     Dates: start: 20230915
  33. DECADRON [Concomitant]
     Active Substance: DEXAMETHASONE
     Dates: start: 20230809
  34. DEXAMETHASONE [Concomitant]
     Active Substance: DEXAMETHASONE
     Dates: start: 20230809
  35. MAGNESIUM OXIDE [Concomitant]
     Active Substance: MAGNESIUM OXIDE
     Dates: start: 20230822
  36. FERROUS SULFATE [Concomitant]
     Active Substance: FERROUS SULFATE
     Dates: start: 20221118
  37. PROTONIX [Concomitant]
     Active Substance: PANTOPRAZOLE SODIUM
     Dates: start: 20221114
  38. ZOFRAN [Concomitant]
     Active Substance: ONDANSETRON HYDROCHLORIDE
     Dates: start: 20230809
  39. SENOKOT [Concomitant]
     Active Substance: SENNOSIDES
     Dates: start: 20231216
  40. FLOMAX [Concomitant]
     Active Substance: TAMSULOSIN HYDROCHLORIDE
     Dates: start: 20210527
  41. VITAMIN D3 [Concomitant]
     Active Substance: CHOLECALCIFEROL
     Dates: start: 20200303
  42. CYANOCOBALAMIN [Concomitant]
     Active Substance: CYANOCOBALAMIN
     Dates: start: 20200303
  43. MELATONIN [Concomitant]
     Active Substance: MELATONIN
     Dates: start: 20190313
  44. VITAMINS [Concomitant]
     Active Substance: VITAMINS
     Dates: start: 20200304
  45. HYDROCORTISONE [Concomitant]
     Active Substance: HYDROCORTISONE
     Dates: start: 20230922
  46. DIPHENHYDRAMINE [Concomitant]
     Active Substance: DIPHENHYDRAMINE
     Dates: start: 20230922
  47. BIOTENE DRY MOUTH [SODIUM FLUOROPHOSPHATE] [Concomitant]
     Dates: start: 20230909
  48. AMBIEN [Concomitant]
     Active Substance: ZOLPIDEM TARTRATE
     Dates: start: 20240419

REACTIONS (3)
  - Hypervolaemia [Recovered/Resolved]
  - Pneumonia [Recovered/Resolved with Sequelae]
  - Small intestinal obstruction [Recovered/Resolved]

NARRATIVE: CASE EVENT DATE: 20240622
